FAERS Safety Report 23350075 (Version 1)
Quarter: 2023Q4

REPORT INFORMATION
  Report Type: Report from Study
  Country: US (occurrence: None)
  Receive Date: 20231229
  Receipt Date: 20231229
  Transmission Date: 20240110
  Serious: Yes (Hospitalization)
  Sender: FDA-Public Use
  Company Number: 2023A292713

PATIENT
  Sex: Male

DRUGS (6)
  1. CALQUENCE [Suspect]
     Active Substance: ACALABRUTINIB
     Indication: Chronic lymphocytic leukaemia
     Route: 048
     Dates: start: 20230513
  2. AMLODIPINE [Concomitant]
     Active Substance: AMLODIPINE BESYLATE
  3. ASPIRIN [Concomitant]
     Active Substance: ASPIRIN
  4. ATORVAFTATIN [Concomitant]
  5. MELATONIN [Concomitant]
     Active Substance: MELATONIN
  6. VITAMIN D [Concomitant]
     Active Substance: VITAMIN D NOS

REACTIONS (6)
  - Cardiac disorder [Unknown]
  - Dizziness [Unknown]
  - Fall [Unknown]
  - Ear disorder [Unknown]
  - Dementia Alzheimer^s type [Unknown]
  - Product dose omission issue [Unknown]
